FAERS Safety Report 8504017-7 (Version None)
Quarter: 2012Q3

REPORT INFORMATION
  Report Type: 
  Country: None (occurrence: None)
  Receive Date: 20120711
  Receipt Date: 20120706
  Transmission Date: 20120928
  Serious: Yes (Hospitalization, Other)
  Sender: FDA-Public Use
  Company Number: PHHY2011MX87352

PATIENT
  Sex: Female

DRUGS (2)
  1. MYFORTIC [Suspect]
     Indication: RENAL TRANSPLANT
     Dosage: 360 MG, TID
     Route: 048
     Dates: start: 20101001
  2. MYFORTIC [Suspect]
     Dosage: 180 MG, 3 TABLETS
     Route: 048
     Dates: start: 20110801

REACTIONS (6)
  - KIDNEY TRANSPLANT REJECTION [None]
  - MUCOUS STOOLS [None]
  - DEHYDRATION [None]
  - FAECES DISCOLOURED [None]
  - DIARRHOEA [None]
  - DISBACTERIOSIS [None]
